FAERS Safety Report 4363620-9 (Version None)
Quarter: 2004Q2

REPORT INFORMATION
  Report Type: 
  Country: None (occurrence: None)
  Receive Date: 20040524
  Receipt Date: 20040524
  Transmission Date: 20050107
  Serious: Yes (Life-Threatening, Hospitalization)
  Sender: FDA-Public Use
  Company Number: None

PATIENT
  Age: 46 Year
  Sex: Male
  Weight: 90.7194 kg

DRUGS (6)
  1. DURAGESIC [Suspect]
     Indication: BACK PAIN
     Dosage: 1 PATCH Q3D CUTANEOUS
     Route: 003
     Dates: start: 20040515, end: 20040516
  2. DURAGESIC [Suspect]
     Indication: INTERVERTEBRAL DISC DISORDER
     Dosage: 1 PATCH Q3D CUTANEOUS
     Route: 003
     Dates: start: 20040515, end: 20040516
  3. MORPHINE [Concomitant]
  4. DILAUDID [Concomitant]
  5. PROMETHAZINE [Concomitant]
  6. FENTANYL [Concomitant]

REACTIONS (3)
  - CARDIAC ARREST [None]
  - COMA [None]
  - SOMNOLENCE [None]
